FAERS Safety Report 8583008-4 (Version None)
Quarter: 2012Q3

REPORT INFORMATION
  Report Type: 
  Country: None (occurrence: None)
  Receive Date: 20120809
  Receipt Date: 20120730
  Transmission Date: 20120928
  Serious: Yes (Hospitalization)
  Sender: FDA-Public Use
  Company Number: AT-ABBOTT-11P-009-0863841-03

PATIENT
  Sex: Female
  Weight: 59 kg

DRUGS (11)
  1. PURINETHOL [Concomitant]
     Indication: CROHN'S DISEASE
     Dates: start: 20080619, end: 20090915
  2. FOLIC ACID [Concomitant]
     Indication: OSTEOPOROSIS PROPHYLAXIS
  3. FOLIC ACID [Concomitant]
     Indication: VITAMIN SUPPLEMENTATION
     Dates: start: 20090716
  4. METHOTREXATE [Concomitant]
     Dates: start: 20091015, end: 20110101
  5. FOLIC ACID [Concomitant]
  6. FOLIC ACID [Concomitant]
     Indication: PROPHYLAXIS
     Dates: start: 20091015, end: 20110101
  7. PURINETHOL [Concomitant]
     Dates: start: 20110917
  8. HUMIRA [Suspect]
     Indication: CROHN'S DISEASE
     Route: 058
     Dates: start: 20080212, end: 20080212
  9. HUMIRA [Suspect]
     Route: 058
  10. HUMIRA [Suspect]
     Dosage: WEEK 2
     Route: 058
  11. METHOTREXATE [Concomitant]
     Indication: CROHN'S DISEASE
     Dates: start: 20090716

REACTIONS (2)
  - PYREXIA [None]
  - LEUKOPENIA [None]
